FAERS Safety Report 19269936 (Version 1)
Quarter: 2021Q2

REPORT INFORMATION
  Report Type: Spontaneous
  Country: US (occurrence: US)
  Receive Date: 20210518
  Receipt Date: 20210518
  Transmission Date: 20210717
  Serious: No
  Sender: FDA-Public Use
  Company Number: US-GILEAD-2021-0526931

PATIENT
  Sex: Male

DRUGS (10)
  1. RHOPRESSA [Concomitant]
     Active Substance: NETARSUDIL MESYLATE
  2. ALPHAGAN P [Concomitant]
     Active Substance: BRIMONIDINE TARTRATE
  3. RITE AID ACETAMINOPHEN [Concomitant]
  4. LUMIGAN [Concomitant]
     Active Substance: BIMATOPROST
  5. MIRTAZAPINE. [Concomitant]
     Active Substance: MIRTAZAPINE
  6. VITAMIN D3 [Concomitant]
     Active Substance: CHOLECALCIFEROL
  7. RISPERIDONE. [Concomitant]
     Active Substance: RISPERIDONE
  8. MULTIVIT [VITAMINS NOS] [Concomitant]
  9. SOFOSBUVIR;VELPATASVIR [Suspect]
     Active Substance: SOFOSBUVIR\VELPATASVIR
     Indication: CHRONIC HEPATITIS C
     Dosage: 1 DOSAGE FORM, QD
     Route: 048
  10. NAPROXEN. [Concomitant]
     Active Substance: NAPROXEN

REACTIONS (3)
  - Balance disorder [Unknown]
  - Intentional dose omission [Unknown]
  - Fatigue [Unknown]
